FAERS Safety Report 9998373 (Version 1)
Quarter: 2014Q1

REPORT INFORMATION
  Report Type: Spontaneous
  Country: US (occurrence: US)
  Receive Date: 20140312
  Receipt Date: 20140312
  Transmission Date: 20141002
  Serious: No
  Sender: FDA-Public Use
  Company Number: US-BIOGENIDEC-2014BI021098

PATIENT
  Sex: Female

DRUGS (1)
  1. TYSABRI [Suspect]
     Indication: MULTIPLE SCLEROSIS
     Route: 042
     Dates: start: 20110513, end: 20130129

REACTIONS (3)
  - Gait disturbance [Not Recovered/Not Resolved]
  - Drug ineffective [Recovered/Resolved]
  - Headache [Not Recovered/Not Resolved]
